FAERS Safety Report 7241640-4 (Version None)
Quarter: 2011Q1

REPORT INFORMATION
  Report Type: 
  Country: None (occurrence: None)
  Receive Date: 20110124
  Receipt Date: 20110114
  Transmission Date: 20110831
  Serious: Yes (Other)
  Sender: FDA-Public Use
  Company Number: CA-JNJFOC-20110105184

PATIENT
  Sex: Male
  Weight: 74 kg

DRUGS (4)
  1. REMICADE [Suspect]
     Route: 042
  2. TYLENOL-500 [Concomitant]
  3. REMICADE [Suspect]
     Indication: CROHN'S DISEASE
     Route: 042
  4. BENADRYL [Concomitant]
     Route: 042

REACTIONS (6)
  - INFUSION RELATED REACTION [None]
  - CHEST DISCOMFORT [None]
  - OROPHARYNGEAL DISCOMFORT [None]
  - FLUSHING [None]
  - SKIN DISCOLOURATION [None]
  - RESPIRATORY RATE INCREASED [None]
